FAERS Safety Report 7449075-6 (Version None)
Quarter: 2011Q2

REPORT INFORMATION
  Report Type: 
  Country: None (occurrence: None)
  Receive Date: 20110502
  Receipt Date: 20091122
  Transmission Date: 20111010
  Serious: Yes (Death, Other)
  Sender: FDA-Public Use
  Company Number: US-BAYER-200940648NA

PATIENT
  Age: 48 Year
  Sex: Female
  Weight: 136.5 kg

DRUGS (7)
  1. HEPARIN [Concomitant]
     Dosage: UNK
     Dates: start: 20030917
  2. LASIX [Concomitant]
     Dosage: UNK
     Dates: start: 20030917
  3. LIDOCAINE [Concomitant]
     Dosage: UNK
     Dates: start: 20030917, end: 20030917
  4. NITROGLYCERIN [Concomitant]
     Dosage: UNK
     Dates: start: 20030917
  5. DIOVAN [Concomitant]
     Route: 048
  6. TRASYLOL [Suspect]
     Indication: AORTIC SURGERY
     Dosage: 200 ML IN PUMP PRIME,
     Route: 042
     Dates: start: 20030917, end: 20030917
  7. PROTAMINE SULFATE [Concomitant]
     Dosage: UNK
     Dates: start: 20030917

REACTIONS (14)
  - EMOTIONAL DISTRESS [None]
  - FEAR [None]
  - RENAL INJURY [None]
  - ANXIETY [None]
  - PAIN [None]
  - INJURY [None]
  - RENAL IMPAIRMENT [None]
  - MENTAL DISORDER [None]
  - DEATH [None]
  - RENAL FAILURE [None]
  - MULTI-ORGAN FAILURE [None]
  - UNEVALUABLE EVENT [None]
  - ANHEDONIA [None]
  - STRESS [None]
